FAERS Safety Report 17438716 (Version 1)
Quarter: 2020Q1

REPORT INFORMATION
  Report Type: Spontaneous
  Country: US (occurrence: US)
  Receive Date: 20200205
  Receipt Date: 20200205
  Transmission Date: 20200409
  Serious: No
  Sender: FDA-Public Use
  Company Number: None

PATIENT
  Sex: Female
  Weight: 72.12 kg

DRUGS (1)
  1. LEVOTHYROXINE. [Suspect]
     Active Substance: LEVOTHYROXINE
     Indication: HYPOTHYROIDISM
     Dosage: 137 DAILY ORAL?150 + 125 DAILY ORAL ?
     Route: 048

REACTIONS (5)
  - Thyroxine free abnormal [None]
  - Alopecia [None]
  - Drug ineffective [None]
  - Blood thyroid stimulating hormone abnormal [None]
  - Fatigue [None]
